FAERS Safety Report 10007186 (Version 1)
Quarter: 2014Q1

REPORT INFORMATION
  Report Type: Spontaneous
  Country: US (occurrence: None)
  Receive Date: 20140312
  Receipt Date: 20140312
  Transmission Date: 20141002
  Serious: Yes (Hospitalization)
  Sender: FDA-Public Use
  Company Number: None

PATIENT
  Age: 69 Year
  Sex: Female
  Weight: 66.6 kg

DRUGS (11)
  1. XARELTO [Suspect]
  2. DIGOXIN [Concomitant]
  3. FERROUS SULFATE [Concomitant]
  4. FUROSEMIDE [Concomitant]
  5. NIFEDIPINE [Concomitant]
  6. SOLIFENACIN [Concomitant]
  7. CITALOPRAM [Concomitant]
  8. DIPHENHYDRAMINE [Concomitant]
  9. MELATONIN [Concomitant]
  10. SIMVASTATIN [Concomitant]
  11. TRAZODONE [Concomitant]

REACTIONS (6)
  - Asthenia [None]
  - Melaena [None]
  - Anaemia [None]
  - Gastritis [None]
  - Erosive oesophagitis [None]
  - Gastrointestinal haemorrhage [None]
